FAERS Safety Report 5206860-9 (Version None)
Quarter: 2007Q1

REPORT INFORMATION
  Report Type: 
  Country: None (occurrence: None)
  Receive Date: 20070109
  Receipt Date: 20061224
  Transmission Date: 20070707
  Serious: Yes (Hospitalization)
  Sender: FDA-Public Use
  Company Number: 233395

PATIENT
  Age: 61 Year
  Sex: Female

DRUGS (3)
  1. HERCEPTIN [Suspect]
     Indication: BREAST CANCER
     Dosage: 440 MG, Q3W, INTRAVENOUS
     Route: 042
     Dates: start: 20061222
  2. HYDROCHLOROTHIAZIDE [Concomitant]
  3. ANASTROZOLE [Concomitant]

REACTIONS (1)
  - GRAND MAL CONVULSION [None]
